FAERS Safety Report 19824524 (Version 1)
Quarter: 2021Q3

REPORT INFORMATION
  Report Type: Spontaneous
  Country: US (occurrence: US)
  Receive Date: 20210913
  Receipt Date: 20210913
  Transmission Date: 20211014
  Serious: Yes (Life-Threatening, Hospitalization, Other)
  Sender: FDA-Public Use
  Company Number: US-SA-2021SA300144

PATIENT
  Age: 60 Year
  Sex: Male

DRUGS (6)
  1. HEPARIN [Suspect]
     Active Substance: HEPARIN SODIUM
     Indication: ANTICOAGULANT THERAPY
     Dosage: UNK
  2. AZITHROMYCIN ANHYDROUS. [Concomitant]
     Active Substance: AZITHROMYCIN ANHYDROUS
     Indication: COVID-19
  3. CEFTRIAXONE. [Concomitant]
     Active Substance: CEFTRIAXONE
     Indication: COVID-19
  4. ENOXAPARIN SODIUM. [Suspect]
     Active Substance: ENOXAPARIN SODIUM
     Indication: PULMONARY EMBOLISM
     Dosage: 1 MG/KG, Q12H (ENOXAPARIN 70 MG)
  5. DEXAMETHASONE. [Concomitant]
     Active Substance: DEXAMETHASONE
     Indication: COVID-19
  6. REMDESIVIR. [Concomitant]
     Active Substance: REMDESIVIR
     Indication: COVID-19

REACTIONS (9)
  - Joint range of motion decreased [Recovering/Resolving]
  - Peripheral coldness [Recovering/Resolving]
  - Respiratory distress [Unknown]
  - Pallor [Recovering/Resolving]
  - Peripheral ischaemia [Recovering/Resolving]
  - Ischaemic limb pain [Recovering/Resolving]
  - Disease recurrence [Recovering/Resolving]
  - Sensory disturbance [Recovering/Resolving]
  - Peripheral artery thrombosis [Recovering/Resolving]
